FAERS Safety Report 22603864 (Version 2)
Quarter: 2023Q2

REPORT INFORMATION
  Report Type: Spontaneous
  Country: US (occurrence: US)
  Receive Date: 20230615
  Receipt Date: 20230620
  Transmission Date: 20230722
  Serious: No
  Sender: FDA-Public Use
  Company Number: US-AMGEN-USASP2023102911

PATIENT
  Age: 49 Year
  Sex: Female

DRUGS (3)
  1. OTEZLA [Suspect]
     Active Substance: APREMILAST
     Indication: Psoriatic arthropathy
     Dosage: UNK, QD, STARTER PACK
     Route: 048
     Dates: start: 202305, end: 202306
  2. MOBIC [Concomitant]
     Active Substance: MELOXICAM
  3. ESTRADIOL [Concomitant]
     Active Substance: ESTRADIOL

REACTIONS (2)
  - Nausea [Not Recovered/Not Resolved]
  - Vomiting [Not Recovered/Not Resolved]

NARRATIVE: CASE EVENT DATE: 20230613
